FAERS Safety Report 8924590 (Version 1)
Quarter: 2012Q4

REPORT INFORMATION
  Report Type: Report from Study
  Country: US (occurrence: US)
  Receive Date: 20121126
  Receipt Date: 20121126
  Transmission Date: 20130627
  Serious: Yes (Hospitalization, Other)
  Sender: FDA-Public Use
  Company Number: US-ABBOTT-12P-163-1009536-00

PATIENT
  Sex: Male
  Weight: 88.53 kg

DRUGS (18)
  1. NIASPAN (COATED) [Suspect]
     Indication: HIGH DENSITY LIPOPROTEIN DECREASED
     Dosage: Every night
     Dates: start: 2003
  2. NIASPAN (COATED) [Suspect]
     Indication: LOW DENSITY LIPOPROTEIN INCREASED
  3. NIASPAN (COATED) [Suspect]
     Indication: BLOOD TRIGLYCERIDES INCREASED
  4. ASPIRIN [Concomitant]
     Indication: PRODUCT USED FOR UNKNOWN INDICATION
     Dosage: 81 mg daily
  5. CRESTOR [Concomitant]
     Indication: PRODUCT USED FOR UNKNOWN INDICATION
  6. LISINOPRIL [Concomitant]
     Indication: PRODUCT USED FOR UNKNOWN INDICATION
  7. LASIX [Concomitant]
     Indication: PRODUCT USED FOR UNKNOWN INDICATION
  8. POTASSIUM [Concomitant]
     Indication: PRODUCT USED FOR UNKNOWN INDICATION
  9. ISOSORBIDE [Concomitant]
     Indication: PRODUCT USED FOR UNKNOWN INDICATION
  10. FOLIC ACID [Concomitant]
     Indication: PRODUCT USED FOR UNKNOWN INDICATION
  11. IRON PILL [Concomitant]
     Indication: PRODUCT USED FOR UNKNOWN INDICATION
  12. MULTIVITAMIN [Concomitant]
     Indication: PRODUCT USED FOR UNKNOWN INDICATION
  13. METFORMIN [Concomitant]
     Indication: BLOOD GLUCOSE ABNORMAL
  14. INSULIN [Concomitant]
     Indication: BLOOD GLUCOSE ABNORMAL
  15. MULTAQ [Concomitant]
     Indication: ATRIAL FIBRILLATION
  16. LEVOTHYROXINE [Concomitant]
     Indication: HYPOTHYROIDISM
  17. AMIODARONE [Concomitant]
     Indication: PNEUMONIA
  18. STEROID [Concomitant]
     Indication: PRODUCT USED FOR UNKNOWN INDICATION

REACTIONS (8)
  - Coronary artery occlusion [Recovered/Resolved]
  - Pneumonia [Recovered/Resolved]
  - Flushing [Not Recovered/Not Resolved]
  - Feeling hot [Not Recovered/Not Resolved]
  - Type 2 diabetes mellitus [Recovered/Resolved]
  - Atrial fibrillation [Recovered/Resolved]
  - Hypothyroidism [Recovered/Resolved]
  - Pulmonary toxicity [Recovered/Resolved]
